FAERS Safety Report 14265406 (Version 7)
Quarter: 2023Q1

REPORT INFORMATION
  Report Type: Spontaneous
  Country: GB (occurrence: GB)
  Receive Date: 20171208
  Receipt Date: 20230307
  Transmission Date: 20230418
  Serious: Yes (Death, Hospitalization, Other)
  Sender: FDA-Public Use
  Company Number: None

PATIENT
  Age: 79 Year
  Sex: Female
  Weight: 79 kg

DRUGS (20)
  1. RAMIPRIL [Suspect]
     Active Substance: RAMIPRIL
     Indication: Product used for unknown indication
     Dosage: 2.5 MG,UNK
     Route: 048
     Dates: start: 20140711
  2. FUROSEMIDE [Suspect]
     Active Substance: FUROSEMIDE
     Indication: Product used for unknown indication
     Dosage: 80 MG,UNK
     Route: 048
     Dates: start: 20170403
  3. ENOXAPARIN SODIUM [Suspect]
     Active Substance: ENOXAPARIN SODIUM
     Indication: Product used for unknown indication
     Dosage: 20 MG,UNK
     Route: 042
     Dates: start: 20170317
  4. FOLIC ACID [Suspect]
     Active Substance: FOLIC ACID
     Indication: Product used for unknown indication
     Dosage: 5 MG,UNK
     Route: 048
     Dates: start: 20170324
  5. APIDRA [Suspect]
     Active Substance: INSULIN GLULISINE
     Indication: Product used for unknown indication
     Dosage: 12 IU,TID
     Route: 058
     Dates: start: 20170403
  6. ALFACALCIDOL [Suspect]
     Active Substance: ALFACALCIDOL
     Indication: Product used for unknown indication
     Dosage: .25 UG,UNK
     Route: 048
     Dates: start: 20161213
  7. NIFEDIPINE [Suspect]
     Active Substance: NIFEDIPINE
     Indication: Product used for unknown indication
     Dosage: 60 MG,UNK
     Route: 048
     Dates: start: 20091027
  8. EPOETIN DELTA [Suspect]
     Active Substance: EPOETIN DELTA
     Indication: Anaemia
     Dosage: 3000 IU,QW
     Route: 058
     Dates: start: 20170628
  9. SODIUM BICARBONATE [Suspect]
     Active Substance: SODIUM BICARBONATE
     Indication: Product used for unknown indication
     Dosage: 1 G,QD
     Route: 048
     Dates: start: 20170403
  10. LINAGLIPTIN [Suspect]
     Active Substance: LINAGLIPTIN
     Indication: Product used for unknown indication
     Dosage: 5 MG,UNK
     Route: 048
     Dates: start: 20170403
  11. ICODEXTRIN [Suspect]
     Active Substance: ICODEXTRIN
     Indication: Peritoneal dialysis
     Dosage: 2 L,QD
     Route: 033
     Dates: start: 20170330, end: 20170712
  12. DIANEAL [Suspect]
     Active Substance: CALCIUM CHLORIDE\DEXTROSE\MAGNESIUM CHLORIDE\SODIUM CHLORIDE\SODIUM LACTATE
     Indication: Peritoneal dialysis
     Dosage: 5 L, QD, DOSAGE TEXT : SOLUTION
     Route: 033
     Dates: start: 20170330, end: 20170712
  13. DIANEAL [Suspect]
     Active Substance: CALCIUM CHLORIDE\DEXTROSE\MAGNESIUM CHLORIDE\SODIUM CHLORIDE\SODIUM LACTATE
     Indication: Peritoneal dialysis
     Dosage: 10 L,UNK
     Route: 033
     Dates: start: 20170330, end: 20170712
  14. LEVEMIR [Suspect]
     Active Substance: INSULIN DETEMIR
     Indication: Product used for unknown indication
     Dosage: 10 IU,UNK
     Route: 058
     Dates: start: 20170403
  15. ENGERIX-B [Suspect]
     Active Substance: HEPATITIS B VIRUS SUBTYPE ADW2 HBSAG SURFACE PROTEIN ANTIGEN
     Indication: Product used for unknown indication
     Dosage: 40 UG,UNK
     Route: 030
     Dates: start: 20161003
  16. EXTRANEAL [Suspect]
     Active Substance: CALCIUM CHLORIDE\ICODEXTRIN\MAGNESIUM CHLORIDE\SODIUM CHLORIDE\SODIUM LACTATE
     Indication: Peritoneal dialysis
     Dosage: 2 L,UNK DOSAGE FORM: SOLUTION; SOLUTION FOR PERITONEAL DIALYSIS
     Route: 033
     Dates: start: 20170330, end: 20170712
  17. ADALAT CC [Suspect]
     Active Substance: NIFEDIPINE
     Indication: Product used for unknown indication
     Dosage: 60 MG
     Route: 048
     Dates: start: 20091027
  18. EPREX [Suspect]
     Active Substance: ERYTHROPOIETIN
     Indication: Anaemia
     Dosage: 3000 IU, QW
     Route: 058
     Dates: start: 20170628
  19. VENOFER [Concomitant]
     Active Substance: IRON SUCROSE
     Indication: Product used for unknown indication
     Dosage: 100 MG,QW
     Route: 042
     Dates: start: 20170324
  20. VENOFER [Concomitant]
     Active Substance: IRON SUCROSE
     Indication: Product used for unknown indication

REACTIONS (1)
  - Cerebrovascular accident [Fatal]

NARRATIVE: CASE EVENT DATE: 20170712
